FAERS Safety Report 4931089-9 (Version None)
Quarter: 2006Q1

REPORT INFORMATION
  Report Type: 
  Country: None (occurrence: None)
  Receive Date: 20060302
  Receipt Date: 20050708
  Transmission Date: 20060701
  Serious: Yes (Hospitalization, Other)
  Sender: FDA-Public Use
  Company Number: US-MERCK-0507USA01236

PATIENT
  Age: 43 Year
  Sex: Male
  Weight: 134 kg

DRUGS (3)
  1. VIOXX [Suspect]
     Indication: ARTHRALGIA
     Route: 048
     Dates: start: 20030601, end: 20040901
  2. VIOXX [Suspect]
     Route: 048
     Dates: start: 20030601, end: 20040901
  3. DIOVAN [Concomitant]
     Indication: HYPERTENSION
     Route: 065

REACTIONS (8)
  - ATRIAL FIBRILLATION [None]
  - BLOOD GLUCOSE INCREASED [None]
  - CEREBROVASCULAR ACCIDENT [None]
  - HYPERTENSION [None]
  - MITRAL VALVE INCOMPETENCE [None]
  - OSTEOARTHRITIS [None]
  - PARAESTHESIA [None]
  - THERMAL BURN [None]
